FAERS Safety Report 5235740-8 (Version None)
Quarter: 2007Q1

REPORT INFORMATION
  Report Type: 
  Country: None (occurrence: None)
  Receive Date: 20070212
  Receipt Date: 20070129
  Transmission Date: 20070707
  Serious: Yes (Other)
  Sender: FDA-Public Use
  Company Number: US-BAYER-200710318BWH

PATIENT

DRUGS (2)
  1. TRASYLOL [Suspect]
     Indication: HEART VALVE OPERATION
  2. VANCOMYCIN HYDROCHLORIDE [Suspect]

REACTIONS (1)
  - DEAFNESS [None]
